FAERS Safety Report 4865650-7 (Version None)
Quarter: 2005Q4

REPORT INFORMATION
  Report Type: 
  Country: None (occurrence: None)
  Receive Date: 20051223
  Receipt Date: 20041101
  Transmission Date: 20060501
  Serious: Yes (Hospitalization, Other)
  Sender: FDA-Public Use
  Company Number: US-ABBOTT-04P-163-0279484-00

PATIENT
  Sex: Female
  Weight: 78.542 kg

DRUGS (12)
  1. HUMIRA [Suspect]
     Indication: RHEUMATOID ARTHRITIS
     Route: 058
     Dates: start: 20041101
  2. HUMIRA [Suspect]
     Dates: start: 20051201
  3. HUMIRA [Suspect]
     Dates: start: 20041201, end: 20051001
  4. HYDROXYCHLOROQUINE PHOSPHATE [Concomitant]
     Indication: RHEUMATOID ARTHRITIS
     Route: 048
     Dates: start: 20041028
  5. PREDNISONE 50MG TAB [Concomitant]
     Indication: RHEUMATOID ARTHRITIS
     Route: 048
     Dates: start: 20020101
  6. METHOTREXATE SODIUM [Concomitant]
     Indication: RHEUMATOID ARTHRITIS
     Route: 048
     Dates: start: 20020101
  7. CELECOXIB [Concomitant]
     Indication: RHEUMATOID ARTHRITIS
     Route: 048
     Dates: start: 19990101
  8. PANTOPRAZOLE [Concomitant]
     Indication: GASTRIC DISORDER
     Route: 048
  9. FOLIC ACID [Concomitant]
     Indication: RHEUMATOID ARTHRITIS
     Route: 048
     Dates: start: 20020101
  10. CALCITONIN-SALMON [Concomitant]
     Indication: OSTEOPOROSIS PROPHYLAXIS
     Dates: start: 20041001
  11. TOPOROL [Concomitant]
     Indication: DRUG USE FOR UNKNOWN INDICATION
     Route: 048
  12. NAPROXEN [Concomitant]
     Indication: DRUG USE FOR UNKNOWN INDICATION
     Route: 048

REACTIONS (4)
  - DRUG ADMINISTRATION ERROR [None]
  - INJECTION SITE HAEMORRHAGE [None]
  - OVARIAN DISORDER [None]
  - POLYP [None]
